FAERS Safety Report 9365328 (Version 1)
Quarter: 2013Q2

REPORT INFORMATION
  Report Type: Report from Study
  Country: FR (occurrence: FR)
  Receive Date: 20130625
  Receipt Date: 20130625
  Transmission Date: 20140414
  Serious: Yes (Life-Threatening)
  Sender: FDA-Public Use
  Company Number: FR-ROCHE-1237964

PATIENT
  Sex: 0

DRUGS (3)
  1. TRASTUZUMAB [Suspect]
     Indication: BREAST CANCER
     Route: 065
  2. PACLITAXEL [Suspect]
     Indication: BREAST CANCER
     Route: 065
  3. EVEROLIMUS [Suspect]
     Indication: BREAST CANCER
     Route: 065

REACTIONS (1)
  - Gastritis haemorrhagic [Unknown]
